FAERS Safety Report 4518276-9 (Version None)
Quarter: 2004Q4

REPORT INFORMATION
  Report Type: 
  Country: None (occurrence: None)
  Receive Date: 20041130
  Receipt Date: 20041118
  Transmission Date: 20050328
  Serious: Yes (Other)
  Sender: FDA-Public Use
  Company Number: 207056

PATIENT
  Age: 29 Year
  Sex: Female

DRUGS (4)
  1. HERCEPTIN [Suspect]
     Indication: BREAST CANCER METASTATIC
     Dosage: Q3W, INTRAVENOUS
     Route: 042
  2. TAXOTERE [Concomitant]
  3. NAVELBINE [Concomitant]
  4. DOXORUBICIN HYDROCHLORIDE [Concomitant]

REACTIONS (8)
  - CAESAREAN SECTION [None]
  - DRUG EXPOSURE DURING PREGNANCY [None]
  - METASTASES TO BONE [None]
  - METASTASES TO CHEST WALL [None]
  - NEOPLASM RECURRENCE [None]
  - OLIGOHYDRAMNIOS [None]
  - PREGNANCY [None]
  - PREMATURE BABY [None]
